FAERS Safety Report 25525936 (Version 1)
Quarter: 2025Q3

REPORT INFORMATION
  Report Type: Spontaneous
  Country: US (occurrence: US)
  Receive Date: 20250707
  Receipt Date: 20250707
  Transmission Date: 20251021
  Serious: Yes (Life-Threatening, Hospitalization)
  Sender: MYLAN
  Company Number: US-MYLANLABS-2025M1055608

PATIENT
  Age: 53 Year
  Sex: Female

DRUGS (5)
  1. ARIPIPRAZOLE [Suspect]
     Active Substance: ARIPIPRAZOLE
     Indication: Bipolar I disorder
     Dosage: 20 MILLIGRAM, QD
  2. SCOPOLAMINE [Suspect]
     Active Substance: SCOPOLAMINE
     Indication: Salivary hypersecretion
  3. ATROPINE [Suspect]
     Active Substance: ATROPINE
     Indication: Salivary hypersecretion
  4. GLYCOPYRROLATE [Suspect]
     Active Substance: GLYCOPYRROLATE
     Indication: Salivary hypersecretion
  5. LITHIUM [Concomitant]
     Active Substance: LITHIUM
     Indication: Bipolar I disorder
     Dosage: 450 MILLIGRAM, BID

REACTIONS (2)
  - Salivary hypersecretion [Recovering/Resolving]
  - Drug ineffective [Unknown]
